FAERS Safety Report 7550090-2 (Version None)
Quarter: 2011Q2

REPORT INFORMATION
  Report Type: 
  Country: None (occurrence: None)
  Receive Date: 20110615
  Receipt Date: 20110606
  Transmission Date: 20111010
  Serious: Yes (Death, Other)
  Sender: FDA-Public Use
  Company Number: CN-ELI_LILLY_AND_COMPANY-CN201106002174

PATIENT
  Age: 80 Year
  Sex: Female

DRUGS (3)
  1. VITAMIN B-12 [Concomitant]
     Dosage: 1000 UG, UNKNOWN
     Route: 030
  2. PEMETREXED [Suspect]
     Indication: NON-SMALL CELL LUNG CANCER
     Dosage: 500 MG/M2, 3/W
     Route: 065
  3. FOLIC ACID [Concomitant]
     Dosage: 400 UG, UNKNOWN
     Route: 048

REACTIONS (3)
  - NEOPLASM PROGRESSION [None]
  - BONE MARROW FAILURE [None]
  - INFECTION [None]
